FAERS Safety Report 24941256 (Version 2)
Quarter: 2025Q1

REPORT INFORMATION
  Report Type: Spontaneous
  Country: AU (occurrence: AU)
  Receive Date: 20250207
  Receipt Date: 20250225
  Transmission Date: 20250409
  Serious: Yes (Hospitalization, Other)
  Sender: RANBAXY
  Company Number: AU-SUN PHARMACEUTICAL INDUSTRIES LTD-2025R1-492660

PATIENT
  Age: 4 Decade
  Sex: Female

DRUGS (1)
  1. OXYCODONE [Suspect]
     Active Substance: OXYCODONE
     Indication: Product used for unknown indication
     Route: 042

REACTIONS (3)
  - Lung disorder [Recovering/Resolving]
  - Wrong technique in product usage process [Unknown]
  - Pulmonary hypertension [Recovering/Resolving]
